FAERS Safety Report 9729099 (Version 3)
Quarter: 2014Q4

REPORT INFORMATION
  Report Type: Report from Study
  Country: JP (occurrence: JP)
  Receive Date: 20131204
  Receipt Date: 20141106
  Transmission Date: 20150529
  Serious: Yes (Death, Hospitalization)
  Sender: FDA-Public Use
  Company Number: PHHY2009JP27225

PATIENT
  Age: 8 Year
  Sex: Male
  Weight: 21 kg

DRUGS (16)
  1. RED BLOOD CELLS, CONCENTRATED [Concomitant]
     Active Substance: HUMAN RED BLOOD CELL
     Dosage: 2 U, EVERY WEEK
     Route: 065
     Dates: start: 20090226, end: 20090819
  2. ICL670A [Suspect]
     Active Substance: DEFERASIROX
     Dosage: 250 MG, DAILY
     Route: 048
     Dates: start: 20090422, end: 20090505
  3. BAKTAR [Concomitant]
     Active Substance: SULFAMETHOXAZOLE\TRIMETHOPRIM
     Indication: PROPHYLAXIS
     Dosage: 1 DF
     Route: 048
     Dates: start: 20080827, end: 20100225
  4. CARBOPLATIN. [Suspect]
     Active Substance: CARBOPLATIN
     Indication: PRODUCT USED FOR UNKNOWN INDICATION
     Route: 065
  5. URSO [Concomitant]
     Active Substance: URSODIOL
     Indication: PROPHYLAXIS
     Dosage: 450 MG
     Route: 048
     Dates: start: 20080819, end: 20090226
  6. PLATELETS [Concomitant]
     Active Substance: HUMAN PLATELET, ALLOGENIC
     Dosage: 10 U, EVERY 2 TO 3 WEEKS
     Route: 065
     Dates: start: 20090226, end: 20090819
  7. PLATELET [Concomitant]
     Indication: PRODUCT USED FOR UNKNOWN INDICATION
     Dosage: 10 U, EVERY 2 TO 3 WEEKS
     Route: 065
     Dates: start: 20090226, end: 20090819
  8. DIFLUCAN [Concomitant]
     Active Substance: FLUCONAZOLE
     Indication: PROPHYLAXIS
     Dosage: 100 MG
     Route: 048
     Dates: start: 20081028, end: 20090514
  9. ETOPOSIDE. [Suspect]
     Active Substance: ETOPOSIDE
     Indication: PRODUCT USED FOR UNKNOWN INDICATION
     Route: 065
  10. RED BLOOD CELLS, CONCENTRATED [Concomitant]
     Active Substance: HUMAN RED BLOOD CELL
     Indication: PRODUCT USED FOR UNKNOWN INDICATION
     Dosage: 2 U, EVERY WEEK
     Route: 065
     Dates: start: 20081112
  11. ITRIZOLE [Concomitant]
     Active Substance: ITRACONAZOLE
     Indication: PROPHYLAXIS
     Dosage: 50 MG
     Route: 048
     Dates: start: 20080827, end: 20081027
  12. ICL670A [Suspect]
     Active Substance: DEFERASIROX
     Indication: NEUROBLASTOMA
     Dosage: 125 MG, DAILY
     Route: 048
     Dates: start: 20080819, end: 20090421
  13. GLYCYRON [Concomitant]
     Active Substance: AMMONIUM GLYCYRRHIZATE\GLYCINE\METHIONINE
     Indication: PRODUCT USED FOR UNKNOWN INDICATION
     Dosage: 3 DF
     Route: 048
     Dates: start: 20080819
  14. PLATELETS [Concomitant]
     Active Substance: HUMAN PLATELET, ALLOGENIC
     Indication: PRODUCT USED FOR UNKNOWN INDICATION
     Dosage: 190 U, UNK
     Route: 065
  15. MELPHALAN [Suspect]
     Active Substance: MELPHALAN
     Indication: PRODUCT USED FOR UNKNOWN INDICATION
     Route: 065
  16. GASTER [Concomitant]
     Active Substance: FAMOTIDINE
     Indication: PRODUCT USED FOR UNKNOWN INDICATION
     Dosage: 10 MG
     Route: 048
     Dates: start: 20080819, end: 20080831

REACTIONS (8)
  - Disease progression [Fatal]
  - Serum ferritin increased [Fatal]
  - Cytopenia [Recovering/Resolving]
  - Gastrointestinal disorder [Unknown]
  - Neuroblastoma recurrent [Fatal]
  - Nausea [Unknown]
  - Hepatic function abnormal [Recovering/Resolving]
  - Blood bilirubin increased [Recovering/Resolving]

NARRATIVE: CASE EVENT DATE: 200808
